FAERS Safety Report 17532831 (Version 4)
Quarter: 2021Q4

REPORT INFORMATION
  Report Type: Spontaneous
  Country: US (occurrence: US)
  Receive Date: 20200312
  Receipt Date: 20211115
  Transmission Date: 20220303
  Serious: No
  Sender: FDA-Public Use
  Company Number: US-PFIZER INC-2020106732

PATIENT
  Age: 57 Year
  Sex: Male

DRUGS (2)
  1. LYRICA [Suspect]
     Active Substance: PREGABALIN
     Indication: Pain
     Dosage: 300 MG, 3X/DAY (TAKE 1 CAPSULE BY MOUTH 3 TIMES DAILY/ONE TID (THREE TIMES A DAY))
     Route: 048
  2. LYRICA [Suspect]
     Active Substance: PREGABALIN
     Dosage: 300 MG, 2X/DAY (WENT FROM TAKING THREE PILLS A DAY TO TAKING TWO PILLS A DAY)

REACTIONS (5)
  - Prescribed overdose [Unknown]
  - Withdrawal syndrome [Unknown]
  - Memory impairment [Unknown]
  - Pain in extremity [Unknown]
  - Sensory disturbance [Unknown]
